FAERS Safety Report 6406453-1 (Version None)
Quarter: 2009Q4

REPORT INFORMATION
  Report Type: 
  Country: None (occurrence: None)
  Receive Date: 20091014
  Receipt Date: 20090731
  Transmission Date: 20100525
  Serious: Yes (Hospitalization)
  Sender: FDA-Public Use
  Company Number: 090731-000023

PATIENT
  Age: 64 Year
  Sex: Female
  Weight: 58.9676 kg

DRUGS (8)
  1. SHEER OVER MINERAL POWDERS SPF 15, GUTHY-RENKER LLC [Suspect]
     Dosage: DAILY, PER LABEL
     Dates: start: 20090709, end: 20090709
  2. SHEER OVER MOISTURIZER SPF 15, GUTHY-RENKER LLC [Suspect]
     Indication: THERAPEUTIC SKIN CARE TOPICAL
     Dosage: DAILY, PER LABEL
     Dates: start: 20090709, end: 20090709
  3. HEART MEDICATION [Concomitant]
  4. HIGH BLOOD PRESSURE MEDICATION [Concomitant]
  5. ALTACE [Concomitant]
  6. TOPERAL [Concomitant]
  7. CRESTOR [Concomitant]
  8. RAMIPRIL [Concomitant]

REACTIONS (4)
  - DYSPNOEA [None]
  - PRURITUS [None]
  - RHINORRHOEA [None]
  - URTICARIA [None]
